FAERS Safety Report 21989583 (Version 1)
Quarter: 2023Q1

REPORT INFORMATION
  Report Type: Spontaneous
  Country: IT (occurrence: IT)
  Receive Date: 20230214
  Receipt Date: 20230214
  Transmission Date: 20230417
  Serious: Yes (Hospitalization)
  Sender: FDA-Public Use
  Company Number: IT-MYLANLABS-2023M1014964

PATIENT
  Age: 72 Year
  Sex: Female

DRUGS (4)
  1. PRAMIPEXOLE [Suspect]
     Active Substance: PRAMIPEXOLE
     Indication: Restless legs syndrome
     Dosage: 0.9 MILLIGRAM, QD
     Route: 065
  2. PRAMIPEXOLE [Suspect]
     Active Substance: PRAMIPEXOLE
     Dosage: 0.18 MILLIGRAM, QD
     Route: 065
  3. METFORMIN [Concomitant]
     Active Substance: METFORMIN HYDROCHLORIDE
     Indication: Type 2 diabetes mellitus
     Dosage: 1000 MILLIGRAM, QD
     Route: 065
  4. TAPENTADOL [Concomitant]
     Active Substance: TAPENTADOL
     Indication: Back pain
     Dosage: UNK, QD
     Route: 065

REACTIONS (3)
  - Dyskinesia [Recovered/Resolved]
  - Movement disorder [Recovered/Resolved]
  - Intentional product misuse [Recovered/Resolved]
